FAERS Safety Report 5176265-8 (Version None)
Quarter: 2006Q4

REPORT INFORMATION
  Report Type: 
  Country: None (occurrence: None)
  Receive Date: 20061207
  Receipt Date: 20061128
  Transmission Date: 20070319
  Serious: Yes (Hospitalization)
  Sender: FDA-Public Use
  Company Number: 232344

PATIENT
  Age: 29 Year
  Sex: Female
  Weight: 130 kg

DRUGS (2)
  1. BEVACIZUMAB OR PLACEBO (BEVACIZUMAB) PWDR + SOLVENT, INFUSION SOLN, 10 [Suspect]
     Indication: BREAST CANCER METASTATIC
     Dosage: 1950 MG, Q3W; INTRAVENOUS
     Route: 042
     Dates: start: 20060905, end: 20061024
  2. TAXOTERE [Suspect]
     Indication: BREAST CANCER METASTATIC
     Dosage: 100 MG/M2,
     Dates: start: 20060905, end: 20061024

REACTIONS (10)
  - BACTERIAL INFECTION [None]
  - BLOOD CULTURE POSITIVE [None]
  - BLOOD PRESSURE DIASTOLIC DECREASED [None]
  - BREAST CELLULITIS [None]
  - CULTURE POSITIVE [None]
  - HERPES VIRUS INFECTION [None]
  - LYMPHOCYTE PERCENTAGE DECREASED [None]
  - NEUTROPHIL PERCENTAGE DECREASED [None]
  - RESPIRATORY RATE INCREASED [None]
  - WHITE BLOOD CELL COUNT DECREASED [None]
